FAERS Safety Report 7119937-8 (Version None)
Quarter: 2010Q4

REPORT INFORMATION
  Report Type: 
  Country: None (occurrence: None)
  Receive Date: 20101123
  Receipt Date: 20101119
  Transmission Date: 20110411
  Serious: Yes (Other)
  Sender: FDA-Public Use
  Company Number: AU-PFIZER INC-2010152655

PATIENT
  Age: 46 Year
  Sex: Female

DRUGS (3)
  1. CHAMPIX [Suspect]
     Dosage: UNK
  2. PHYSEPTONE [Concomitant]
     Indication: BACK PAIN
     Dosage: UNK
  3. VALIUM [Concomitant]
     Indication: MUSCLE SPASMS
     Dosage: AS NEEDED

REACTIONS (2)
  - BLOOD PRESSURE INCREASED [None]
  - MALAISE [None]
